FAERS Safety Report 25806580 (Version 2)
Quarter: 2025Q3

REPORT INFORMATION
  Report Type: Spontaneous
  Country: US (occurrence: US)
  Receive Date: 20250916
  Receipt Date: 20250922
  Transmission Date: 20251020
  Serious: No
  Sender: LUPIN
  Company Number: US-LUPIN PHARMACEUTICALS INC.-2025-08073

PATIENT
  Age: 85 Year
  Weight: 72.562 kg

DRUGS (2)
  1. MIRABEGRON [Interacting]
     Active Substance: MIRABEGRON
     Indication: Product used for unknown indication
     Route: 065
  2. METOPROLOL [Interacting]
     Active Substance: METOPROLOL
     Indication: Product used for unknown indication
     Route: 065

REACTIONS (4)
  - Oropharyngeal pain [Recovered/Resolved]
  - Glossodynia [Recovered/Resolved]
  - Nasopharyngitis [Recovered/Resolved]
  - Drug interaction [Recovered/Resolved]
